FAERS Safety Report 8002926-9 (Version None)
Quarter: 2011Q4

REPORT INFORMATION
  Report Type: 
  Country: None (occurrence: None)
  Receive Date: 20111222
  Receipt Date: 20110329
  Transmission Date: 20120403
  Serious: No
  Sender: FDA-Public Use
  Company Number: US-GLAXOSMITHKLINE-A0920433A

PATIENT
  Sex: Male

DRUGS (2)
  1. COUMADIN [Concomitant]
  2. AVODART [Suspect]
     Dosage: 1CAP PER DAY
     Route: 048

REACTIONS (1)
  - DRUG LEVEL CHANGED [None]
